FAERS Safety Report 4953533-3 (Version None)
Quarter: 2006Q1

REPORT INFORMATION
  Report Type: 
  Country: None (occurrence: None)
  Receive Date: 20060324
  Receipt Date: 20060310
  Transmission Date: 20060701
  Serious: Yes (Hospitalization)
  Sender: FDA-Public Use
  Company Number: JP-ROCHE-440385

PATIENT
  Age: 6 Year
  Sex: Male
  Weight: 20 kg

DRUGS (4)
  1. TAMIFLU [Suspect]
     Dosage: DRY SYRUP 3% OSELTAMIVIR. DISCONTINUATION DATE WAS REPORTED AS 2006.
     Route: 048
     Dates: start: 20060115
  2. TAMIFLU [Suspect]
     Route: 048
     Dates: start: 20060308, end: 20060308
  3. ACETAMINOPHEN [Suspect]
     Indication: HYPERTHERMIA
     Dosage: DOSE FORM REPORTED AS RECTAL SUPPOSITORY. TAKEN AS NEEDED.
     Route: 054
     Dates: start: 20060308, end: 20060308
  4. UNSPECIFIED ANTIBIOTICS [Concomitant]
     Dosage: DOSE FORM REPORTED AS ORAL FORMULATION (NOT OTHERWISE SPECIFIED).
     Route: 048
     Dates: start: 20060308

REACTIONS (2)
  - ABNORMAL BEHAVIOUR [None]
  - HALLUCINATION, AUDITORY [None]
